FAERS Safety Report 9538977 (Version 1)
Quarter: 2013Q2

REPORT INFORMATION
  Report Type: Spontaneous
  Country: US (occurrence: None)
  Receive Date: 20130517
  Receipt Date: 20130517
  Transmission Date: 20140414
  Serious: Yes (Other)
  Sender: FDA-Public Use
  Company Number: 1000042673

PATIENT
  Age: 49 Year
  Sex: Female

DRUGS (3)
  1. VIIBRYD [Suspect]
     Route: 048
     Dates: start: 20130207
  2. FLEXERIL (CYCLOBENZAPRINE) [Concomitant]
  3. MOBIC (MELOXICAM) [Concomitant]

REACTIONS (2)
  - Vision blurred [None]
  - Dark circles under eyes [None]
